FAERS Safety Report 8430698-2 (Version None)
Quarter: 2012Q2

REPORT INFORMATION
  Report Type: 
  Country: None (occurrence: None)
  Receive Date: 20120612
  Receipt Date: 20120604
  Transmission Date: 20120825
  Serious: Yes (Hospitalization, Other)
  Sender: FDA-Public Use
  Company Number: CA-JNJFOC-20110201502

PATIENT
  Sex: Female
  Weight: 61.24 kg

DRUGS (6)
  1. REMICADE [Suspect]
     Route: 042
     Dates: start: 20031111, end: 20101101
  2. DEXAMETHASONE [Concomitant]
     Indication: BRAIN OEDEMA
  3. REMICADE [Suspect]
     Indication: CROHN'S DISEASE
     Route: 042
     Dates: start: 20031111, end: 20101101
  4. REMICADE [Suspect]
     Route: 042
     Dates: start: 20120101
  5. IMURAN [Concomitant]
  6. REMICADE [Suspect]
     Indication: RHEUMATOID ARTHRITIS
     Route: 042
     Dates: start: 20120101

REACTIONS (1)
  - LUNG ADENOCARCINOMA STAGE IV [None]
